FAERS Safety Report 20092401 (Version 2)
Quarter: 2021Q4

REPORT INFORMATION
  Report Type: Spontaneous
  Country: US (occurrence: US)
  Receive Date: 20211119
  Receipt Date: 20211213
  Transmission Date: 20220303
  Serious: No
  Sender: FDA-Public Use
  Company Number: US-GSKCCFUS-Case-01220333_AE-71500

PATIENT
  Sex: Male

DRUGS (1)
  1. FLOVENT [Suspect]
     Active Substance: FLUTICASONE PROPIONATE
     Indication: Lower respiratory tract infection
     Dosage: 220MCG

REACTIONS (3)
  - Product dose omission issue [Unknown]
  - Off label use [Unknown]
  - Product complaint [Unknown]
